FAERS Safety Report 8847785 (Version 2)
Quarter: 2012Q4

REPORT INFORMATION
  Report Type: 
  Country: US (occurrence: US)
  Receive Date: 20121018
  Receipt Date: 20121031
  Transmission Date: 20130627
  Serious: Yes (Hospitalization)
  Sender: FDA-Public Use
  Company Number: US-GILEAD-2012-0063021

PATIENT
  Age: 70 Year
  Sex: Male

DRUGS (2)
  1. RANEXA [Suspect]
     Indication: MYOCARDIAL ISCHAEMIA
     Dosage: 2000 mg, BID
     Route: 048
     Dates: start: 201209
  2. RANEXA [Suspect]
     Dosage: 500 mg, UNK
     Route: 048

REACTIONS (3)
  - Overdose [Recovered/Resolved]
  - Presyncope [Recovered/Resolved]
  - Muscular weakness [Recovered/Resolved]
